FAERS Safety Report 21950482 (Version 1)
Quarter: 2023Q1

REPORT INFORMATION
  Report Type: Spontaneous
  Country: US (occurrence: None)
  Receive Date: 20230203
  Receipt Date: 20230203
  Transmission Date: 20230417
  Serious: Yes (Life-Threatening, Hospitalization, Disabling, Other)
  Sender: FDA-Public Use
  Company Number: None

PATIENT
  Age: 54 Year
  Sex: Female

DRUGS (7)
  1. ARAVA [Suspect]
     Active Substance: LEFLUNOMIDE
     Indication: Systemic lupus erythematosus
     Dosage: OTHER QUANTITY : 1 CAPSULE(S);?
     Route: 048
     Dates: start: 20220801
  2. PLAQUENIL [Concomitant]
     Active Substance: HYDROXYCHLOROQUINE SULFATE
  3. ZOLOFT [Concomitant]
     Active Substance: SERTRALINE HYDROCHLORIDE
  4. CLONOPIN [Concomitant]
     Active Substance: CLONAZEPAM
  5. MORPHINE [Concomitant]
     Active Substance: MORPHINE
  6. OXYCODONE [Concomitant]
     Active Substance: OXYCODONE
  7. PANTOPRAZOLE [Concomitant]
     Active Substance: PANTOPRAZOLE

REACTIONS (25)
  - Illness [None]
  - Abnormal loss of weight [None]
  - General physical health deterioration [None]
  - Diarrhoea [None]
  - Rash [None]
  - Alopecia [None]
  - Hypertension [None]
  - Nausea [None]
  - Headache [None]
  - Abdominal pain [None]
  - Dizziness [None]
  - Chest pain [None]
  - Thirst [None]
  - Muscle spasms [None]
  - Mood altered [None]
  - Visual impairment [None]
  - Increased tendency to bruise [None]
  - Mass [None]
  - Fatigue [None]
  - Oropharyngeal pain [None]
  - Pyrexia [None]
  - Chills [None]
  - Lymphadenopathy [None]
  - Pruritus [None]
  - Candida infection [None]

NARRATIVE: CASE EVENT DATE: 20221001
